FAERS Safety Report 9444897 (Version 1)
Quarter: 2013Q3

REPORT INFORMATION
  Report Type: Spontaneous
  Country: US (occurrence: US)
  Receive Date: 20130807
  Receipt Date: 20130807
  Transmission Date: 20140515
  Serious: Yes (Life-Threatening, Other)
  Sender: FDA-Public Use
  Company Number: US-ROXANE LABORATORIES, INC.-2013-RO-01286RO

PATIENT
  Age: 77 Year
  Sex: Female

DRUGS (1)
  1. MORPHINE [Suspect]

REACTIONS (2)
  - Dyspnoea [Unknown]
  - Sedation [Unknown]
